FAERS Safety Report 12550472 (Version 1)
Quarter: 2016Q3

REPORT INFORMATION
  Report Type: Spontaneous
  Country: GB (occurrence: GB)
  Receive Date: 20160712
  Receipt Date: 20160712
  Transmission Date: 20161109
  Serious: Yes (Other)
  Sender: FDA-Public Use
  Company Number: PHHY2016GB091601

PATIENT
  Age: 51 Year
  Sex: Female
  Weight: 87.8 kg

DRUGS (1)
  1. AMLODIPINE [Suspect]
     Active Substance: AMLODIPINE BESYLATE
     Indication: HYPERTENSION
     Dosage: 5 MG, UNK
     Route: 048
     Dates: start: 20160619, end: 20160622

REACTIONS (1)
  - Adjustment disorder with mixed anxiety and depressed mood [Unknown]

NARRATIVE: CASE EVENT DATE: 20160620
